FAERS Safety Report 8062129-9 (Version None)
Quarter: 2012Q1

REPORT INFORMATION
  Report Type: 
  Country: None (occurrence: None)
  Receive Date: 20120118
  Receipt Date: 20120103
  Transmission Date: 20120608
  Serious: Yes (Hospitalization)
  Sender: FDA-Public Use
  Company Number: JPI-P-019111

PATIENT
  Age: 53 Year
  Sex: Male
  Weight: 99.7913 kg

DRUGS (4)
  1. XYREM [Suspect]
     Indication: CATAPLEXY
     Dosage: (UNKNOWN, 2 IN 1 D), ORAL 6 GM (3 GM, 2 IN 1 D), ORAL
     Route: 048
     Dates: start: 20110801
  2. XYREM [Suspect]
     Indication: CATAPLEXY
     Dosage: (UNKNOWN, 2 IN 1 D), ORAL 6 GM (3 GM, 2 IN 1 D), ORAL
     Route: 048
     Dates: start: 20110101
  3. ALPRAZOLAM [Concomitant]
  4. METOPROLOL TARTRATE [Concomitant]

REACTIONS (6)
  - DYSPNOEA [None]
  - HEART RATE INCREASED [None]
  - KNEE OPERATION [None]
  - FEELING JITTERY [None]
  - TREMOR [None]
  - CONDITION AGGRAVATED [None]
